FAERS Safety Report 14450722 (Version 1)
Quarter: 2018Q1

REPORT INFORMATION
  Report Type: Spontaneous
  Country: US (occurrence: US)
  Receive Date: 20180126
  Receipt Date: 20180126
  Transmission Date: 20180509
  Serious: Yes (Other)
  Sender: FDA-Public Use
  Company Number: None

PATIENT
  Sex: Female
  Weight: 60.75 kg

DRUGS (1)
  1. MUPIROCIN OINTMENT USP 2% [Suspect]
     Active Substance: MUPIROCIN
     Indication: IMPETIGO
     Dosage: QUANTITY:1 SMALL AMOUNT;?
     Route: 061
     Dates: start: 20180123, end: 20180125

REACTIONS (7)
  - Scar [None]
  - Burning sensation [None]
  - Infection [None]
  - Swelling [None]
  - Pain [None]
  - Blister [None]
  - Erythema [None]

NARRATIVE: CASE EVENT DATE: 20180124
